FAERS Safety Report 7514898-1 (Version None)
Quarter: 2011Q2

REPORT INFORMATION
  Report Type: 
  Country: None (occurrence: None)
  Receive Date: 20110601
  Receipt Date: 20110517
  Transmission Date: 20111010
  Serious: Yes (Hospitalization, Other)
  Sender: FDA-Public Use
  Company Number: FR-JNJFOC-20110302894

PATIENT
  Sex: Male

DRUGS (4)
  1. HEMISUCCINATE HYDROCORTISONE [Concomitant]
     Indication: PREMEDICATION
     Route: 042
  2. POLARAMINE [Concomitant]
     Indication: PREMEDICATION
     Route: 048
  3. REMICADE [Suspect]
     Route: 042
     Dates: start: 20101123
  4. REMICADE [Suspect]
     Indication: CROHN'S DISEASE
     Route: 042

REACTIONS (3)
  - INFUSION RELATED REACTION [None]
  - TACHYCARDIA [None]
  - PALPITATIONS [None]
